FAERS Safety Report 8337918-3 (Version None)
Quarter: 2012Q1

REPORT INFORMATION
  Report Type: 
  Country: None (occurrence: None)
  Receive Date: 20120329
  Receipt Date: 20101123
  Transmission Date: 20120608
  Serious: Yes (Other)
  Sender: FDA-Public Use
  Company Number: PHHY2010US77440

PATIENT
  Age: 78 Year
  Sex: Female

DRUGS (1)
  1. EXELON [Suspect]

REACTIONS (2)
  - DEMENTIA ALZHEIMER'S TYPE [None]
  - MEMORY IMPAIRMENT [None]
